FAERS Safety Report 18579112 (Version 1)
Quarter: 2020Q4

REPORT INFORMATION
  Report Type: Not Available
  Country: None (occurrence: None)
  Receive Date: 20201204
  Receipt Date: 20201204
  Transmission Date: 20210114
  Serious: No
  Sender: FDA-Public Use
  Company Number: US-AKORN-152830

PATIENT
  Age: 13 Year
  Sex: Female
  Weight: 49 kg

DRUGS (1)
  1. MYORISAN [Suspect]
     Active Substance: ISOTRETINOIN

REACTIONS (6)
  - Off label use [Recovered/Resolved]
  - Drug ineffective [Recovered/Resolved]
  - Diarrhoea [Unknown]
  - Lactose intolerance [Unknown]
  - Headache [Recovered/Resolved]
  - Abdominal discomfort [Not Recovered/Not Resolved]
